FAERS Safety Report 9587248 (Version 1)
Quarter: 2013Q4

REPORT INFORMATION
  Report Type: Spontaneous
  Country: US (occurrence: US)
  Receive Date: 20131003
  Receipt Date: 20131003
  Transmission Date: 20140711
  Serious: No
  Sender: FDA-Public Use
  Company Number: US-TEVA-435885USA

PATIENT
  Age: 21 Year
  Sex: Female
  Weight: 89.89 kg

DRUGS (1)
  1. PARAGARD 380A [Suspect]
     Indication: CONTRACEPTION
     Route: 015
     Dates: start: 20130917, end: 20130927

REACTIONS (1)
  - Device expulsion [Recovered/Resolved]
